FAERS Safety Report 14274320 (Version 7)
Quarter: 2019Q4

REPORT INFORMATION
  Report Type: Report from Study
  Country: KR (occurrence: KR)
  Receive Date: 20171212
  Receipt Date: 20191213
  Transmission Date: 20200122
  Serious: Yes (Hospitalization, Other)
  Sender: FDA-Public Use
  Company Number: KR-BRISTOL-MYERS SQUIBB COMPANY-BMS-2016-104375

PATIENT
  Age: 62 Year
  Sex: Female

DRUGS (19)
  1. DAEWOONG URSA B [Concomitant]
     Indication: LIVER DISORDER
     Dosage: 600 MG, UNK
     Route: 048
     Dates: start: 20120517
  2. THIAMINE. [Concomitant]
     Active Substance: THIAMINE
     Indication: LIVER DISORDER
     Dosage: 30 MG, UNK
     Route: 048
     Dates: start: 20120517
  3. SINGULAIR [Concomitant]
     Active Substance: MONTELUKAST SODIUM
     Indication: BRONCHIECTASIS
     Dosage: 10 MG, UNK
     Route: 048
     Dates: start: 20160622
  4. PLATLESS [Concomitant]
     Active Substance: CLOPIDOGREL BISULFATE
     Indication: CEREBRAL INFARCTION
     Dosage: 1 TAB
     Route: 048
     Dates: start: 20160621
  5. FEROBA [Concomitant]
     Active Substance: FERROUS SULFATE\PROTEASE
     Indication: PROPHYLAXIS
     Dosage: 1 TAB
     Route: 048
     Dates: start: 20170508
  6. DEXIDE [METFORMIN HYDROCHLORIDE] [Concomitant]
     Indication: DIABETES MELLITUS
     Dosage: 480 MG, UNK
     Route: 048
     Dates: start: 20150707
  7. LEVOTUSS [Concomitant]
     Active Substance: LEVODROPROPIZINE
     Indication: BRONCHIECTASIS
     Dosage: UNK
     Route: 048
     Dates: start: 20121123
  8. LANTUS [Concomitant]
     Active Substance: INSULIN GLARGINE
     Indication: DIABETES MELLITUS
     Dosage: UNK
     Route: 058
     Dates: start: 20120622
  9. ROVETIN [Concomitant]
     Indication: CEREBRAL INFARCTION
     Dosage: 10 MG, UNK
     Route: 048
     Dates: start: 20160628
  10. DACLATASVIR DIHYDROCHLORIDE [Suspect]
     Active Substance: DACLATASVIR DIHYDROCHLORIDE
     Indication: CHRONIC HEPATITIS C
     Dosage: 60 MG, QD
     Route: 065
     Dates: start: 20161031, end: 20170314
  11. GANAKHAN [Concomitant]
     Indication: PROPHYLAXIS
     Dosage: 50 MG, 3 TABS
     Route: 048
     Dates: start: 20130126
  12. ENAFON [Concomitant]
     Indication: CEREBRAL INFARCTION
     Dosage: 10 MG, UNK
     Route: 048
     Dates: start: 20130319
  13. APIDRA SOLOSTAR [Concomitant]
     Active Substance: INSULIN GLULISINE
     Indication: DIABETES MELLITUS
     Dosage: UNK
     Route: 058
     Dates: start: 20120622
  14. ASUNAPREVIR [Suspect]
     Active Substance: ASUNAPREVIR
     Indication: CHRONIC HEPATITIS C
     Dosage: 100 MG, BID
     Route: 065
     Dates: start: 20161031, end: 20170314
  15. SOMEROL [Concomitant]
     Indication: TINNITUS
     Dosage: 4 MILLIGRAM, 4 TAB
     Route: 048
     Dates: start: 20170516
  16. TRANSAMIN [Concomitant]
     Active Substance: TRANEXAMIC ACID
     Indication: BRONCHIECTASIS
     Dosage: 3 DOSAGE FORM
     Route: 048
     Dates: start: 20161109, end: 20161117
  17. REXFORGE Q [Concomitant]
     Indication: HYPERTENSION
     Dosage: 1 TAB
     Route: 048
     Dates: start: 20170508
  18. VALSAONE PLUS [Concomitant]
     Indication: HYPERTENSION
     Dosage: 1 TAB
     Route: 048
     Dates: start: 20161031, end: 20161124
  19. TENORMIN [Concomitant]
     Active Substance: ATENOLOL
     Indication: HYPERTENSION
     Dosage: 1 MILLIGRAM
     Route: 048
     Dates: start: 20161125, end: 20170508

REACTIONS (7)
  - Acute kidney injury [Recovered/Resolved]
  - Ankle fracture [Recovered/Resolved]
  - Chronic kidney disease [Not Recovered/Not Resolved]
  - Hyperkalaemia [Recovered/Resolved]
  - Tinnitus [Not Recovered/Not Resolved]
  - Femur fracture [Recovering/Resolving]
  - Pneumonia [Recovered/Resolved]

NARRATIVE: CASE EVENT DATE: 20161118
